FAERS Safety Report 4329658-2 (Version None)
Quarter: 2004Q2

REPORT INFORMATION
  Report Type: 
  Country: None (occurrence: None)
  Receive Date: 20040401
  Receipt Date: 20040205
  Transmission Date: 20050107
  Serious: Yes (Hospitalization)
  Sender: FDA-Public Use
  Company Number: PHRM2004FR00768

PATIENT
  Age: 52 Year
  Sex: Female

DRUGS (2)
  1. AK-FLUOR (NVO) [Suspect]
     Indication: ANGIOGRAM RETINA
     Dosage: 0.5 ML
     Route: 042
     Dates: start: 20040203, end: 20040203
  2. NEOSYNEPHRINE 10% (NVO) [Suspect]
     Indication: MYDRIASIS
     Route: 047
     Dates: start: 20040203, end: 20040203

REACTIONS (6)
  - DIZZINESS [None]
  - HYPERHIDROSIS [None]
  - HYPOTENSION [None]
  - MALAISE [None]
  - NAUSEA [None]
  - VOMITING [None]
